FAERS Safety Report 25496091 (Version 1)
Quarter: 2025Q2

REPORT INFORMATION
  Report Type: Spontaneous
  Country: PT (occurrence: PT)
  Receive Date: 20250630
  Receipt Date: 20250630
  Transmission Date: 20250716
  Serious: Yes (Other)
  Sender: SANDOZ
  Company Number: None

PATIENT
  Age: 59 Year
  Sex: Female

DRUGS (1)
  1. HYRIMOZ [Suspect]
     Active Substance: ADALIMUMAB-ADAZ
     Indication: Allergy test
     Dosage: 20 MG, QD, 20 MG/0.2 ML PRE-FILLED SYRINGE
     Route: 065
     Dates: start: 20250616, end: 20250616

REACTIONS (6)
  - Dysphonia [Recovered/Resolved]
  - Dysphonia [Recovered/Resolved]
  - Nasal obstruction [Recovered/Resolved]
  - Hypersensitivity [Recovered/Resolved]
  - Cough [Recovered/Resolved]
  - Pruritus [Recovered/Resolved]

NARRATIVE: CASE EVENT DATE: 20250616
